FAERS Safety Report 4649200-6 (Version None)
Quarter: 2005Q2

REPORT INFORMATION
  Report Type: 
  Country: None (occurrence: None)
  Receive Date: 20050331
  Receipt Date: 20041216
  Transmission Date: 20051028
  Serious: No
  Sender: FDA-Public Use
  Company Number: 04P-163-0283845-00

PATIENT
  Age: 66 Year
  Sex: Female

DRUGS (10)
  1. HUMIRA [Suspect]
     Indication: RHEUMATOID ARTHRITIS
     Dosage: 40 MG, 1 IN 2 WK, SUBCUTANEOUS
     Route: 058
     Dates: start: 20040701
  2. PREDNISONE TAB [Concomitant]
  3. NERVITONE [Concomitant]
  4. COMBIVENT [Concomitant]
  5. SALBUTAMOL [Concomitant]
  6. ASCORBIC ACID [Concomitant]
  7. PYRIDOXINE HYDROCHLORIDE [Concomitant]
  8. CALCIUM GLUCONATE [Concomitant]
  9. TOCOPHEROL CONCENTRATE CAP [Concomitant]
  10. SALMON OIL [Concomitant]

REACTIONS (3)
  - HEADACHE [None]
  - INJECTION SITE PAIN [None]
  - RASH [None]
